FAERS Safety Report 22023392 (Version 7)
Quarter: 2023Q2

REPORT INFORMATION
  Report Type: Spontaneous
  Country: DE (occurrence: DE)
  Receive Date: 20230223
  Receipt Date: 20230505
  Transmission Date: 20230722
  Serious: Yes (Death, Other)
  Sender: FDA-Public Use
  Company Number: DE-ROCHE-3277766

PATIENT
  Age: 72 Year
  Sex: Male

DRUGS (5)
  1. RITUXIMAB [Suspect]
     Active Substance: RITUXIMAB
     Indication: Diffuse large B-cell lymphoma stage IV
     Dosage: 375 MG/M2, CYCLIC (DAY 1 OF EACH 28 DAY CYCLE FOR 6 CYCLES, HEMOTHERAPEUTIC-FREE PCY)
     Route: 042
     Dates: start: 20171025
  2. LENALIDOMIDE [Suspect]
     Active Substance: LENALIDOMIDE
     Indication: Diffuse large B-cell lymphoma stage IV
     Dosage: 20 MG, 1.33 DAY (DAYS 1, 21 OF EACH 28 DAY CYCLE, CHEMOTHERAPEUTIC-FREE PCYC1123-CA)
     Route: 048
     Dates: start: 20171025
  3. FILGRASTIM [Suspect]
     Active Substance: FILGRASTIM
     Indication: Neutropenia
     Dosage: FOR FOUR SUBSEQUENT DAYS BEFORE CYCLE 4
     Route: 058
     Dates: start: 201801
  4. FILGRASTIM [Suspect]
     Active Substance: FILGRASTIM
     Dosage: READMINISTER FOR FOUR SUBSEQUENT DAYS
     Route: 058
     Dates: start: 20180228
  5. IMBRUVICA [Suspect]
     Active Substance: IBRUTINIB
     Indication: Diffuse large B-cell lymphoma stage IV
     Dosage: 560 MG, QD (CHEMOTHERAPEUTIC-FREE PCYC1123)
     Route: 048

REACTIONS (5)
  - Acute myeloid leukaemia [Fatal]
  - Second primary malignancy [Fatal]
  - Therapy partial responder [Unknown]
  - Product use in unapproved indication [Unknown]
  - Product use issue [Unknown]

NARRATIVE: CASE EVENT DATE: 20180101
